FAERS Safety Report 11908114 (Version 1)
Quarter: 2016Q1

REPORT INFORMATION
  Report Type: Spontaneous
  Country: US (occurrence: US)
  Receive Date: 20160111
  Receipt Date: 20160111
  Transmission Date: 20160526
  Serious: Yes (Other)
  Sender: FDA-Public Use
  Company Number: US-BEDFORD LABORATORIES-2015BV000403

PATIENT
  Age: 65 Year
  Sex: Female

DRUGS (1)
  1. CEFTRIAXONE. [Suspect]
     Active Substance: CEFTRIAXONE
     Indication: PNEUMONIA BACTERIAL
     Dosage: 2 G, Q12H ^FOR A PLANNED ONE-MONTH DURATION^
     Route: 065

REACTIONS (2)
  - Hepatitis acute [Recovered/Resolved]
  - Idiosyncratic drug reaction [Recovered/Resolved]
